FAERS Safety Report 5011253-3 (Version None)
Quarter: 2006Q2

REPORT INFORMATION
  Report Type: 
  Country: None (occurrence: None)
  Receive Date: 20060524
  Receipt Date: 20060512
  Transmission Date: 20061013
  Serious: Yes (Other)
  Sender: FDA-Public Use
  Company Number: 200610215BWH

PATIENT
  Age: 51 Year
  Sex: Male
  Weight: 114.3065 kg

DRUGS (2)
  1. SORAFENIB [Suspect]
     Indication: METASTATIC RENAL CELL CARCINOMA
     Dosage: 400 MG, QD, ORAL
     Route: 048
     Dates: start: 20060106, end: 20060109
  2. COUMADIN [Concomitant]

REACTIONS (3)
  - HEMIPARESIS [None]
  - HYPERTENSION [None]
  - METASTASES TO CENTRAL NERVOUS SYSTEM [None]
